FAERS Safety Report 7783984-3 (Version None)
Quarter: 2011Q3

REPORT INFORMATION
  Report Type: 
  Country: None (occurrence: None)
  Receive Date: 20110928
  Receipt Date: 20110126
  Transmission Date: 20111222
  Serious: Yes (Death)
  Sender: FDA-Public Use
  Company Number: US-MYLANLABS-2011S1001990

PATIENT
  Age: 67 Year
  Sex: Male

DRUGS (4)
  1. FLUOXETINE [Suspect]
     Indication: DEPRESSION
     Route: 048
     Dates: start: 20101101, end: 20101101
  2. FLUOXETINE [Suspect]
     Route: 048
     Dates: start: 20101101, end: 20101201
  3. FLUOXETINE [Suspect]
     Dates: start: 20101201
  4. WELLBUTRIN [Concomitant]

REACTIONS (4)
  - INFLUENZA LIKE ILLNESS [None]
  - PALPITATIONS [None]
  - RASH [None]
  - COMPLETED SUICIDE [None]
